FAERS Safety Report 10208660 (Version 1)
Quarter: 2014Q2

REPORT INFORMATION
  Report Type: Spontaneous
  Country: US (occurrence: US)
  Receive Date: 20140530
  Receipt Date: 20140530
  Transmission Date: 20141212
  Serious: No
  Sender: FDA-Public Use
  Company Number: US-PFIZER INC-2014147902

PATIENT
  Sex: 0

DRUGS (2)
  1. LYRICA [Suspect]
     Indication: FATIGUE
     Dosage: UNK
  2. LYRICA [Suspect]
     Indication: FIBROMYALGIA

REACTIONS (4)
  - Drug ineffective [Unknown]
  - Fatigue [Unknown]
  - Asthenia [Unknown]
  - Pain [Unknown]
